FAERS Safety Report 10035171 (Version 1)
Quarter: 2014Q1

REPORT INFORMATION
  Report Type: Spontaneous
  Country: US (occurrence: None)
  Receive Date: 20140306
  Receipt Date: 20140306
  Transmission Date: 20141002
  Serious: Yes (Other)
  Sender: FDA-Public Use
  Company Number: 163-21880-13123862

PATIENT
  Age: 59 Year
  Sex: Female
  Weight: 45.4 kg

DRUGS (10)
  1. REVLIMID [Suspect]
     Indication: PLASMA CELL MYELOMA
     Route: 048
     Dates: start: 201309
  2. DEXAMETHASONE (DEXAMETHASONE) [Concomitant]
  3. VENLAFAXINE (VENLAFAXINE) [Concomitant]
  4. ASPIRIN (ACETYLSALICYLIC ACID) [Concomitant]
  5. VALTREX (VALACICLOVIR HYDROCHLORIDE) [Concomitant]
  6. ALLOPURINOL (ALLOPURINOL) [Concomitant]
  7. RANITIDINE (RANITIDINE) [Concomitant]
  8. VITAMIN D (ERGOCALCIFEROL) [Concomitant]
  9. OMEPRAZOLE (OMEPRAZOLE) [Concomitant]
  10. GNP MAGNESIUM (MAGNESIUM) [Concomitant]

REACTIONS (2)
  - Anxiety [None]
  - Depression [None]
